FAERS Safety Report 16601709 (Version 3)
Quarter: 2020Q2

REPORT INFORMATION
  Report Type: Report from Study
  Country: IT (occurrence: IT)
  Receive Date: 20190719
  Receipt Date: 20200408
  Transmission Date: 20200713
  Serious: Yes (Hospitalization)
  Sender: FDA-Public Use
  Company Number: IT-INCYTE CORPORATION-2018IN005718

PATIENT

DRUGS (6)
  1. JAKAVI [Suspect]
     Active Substance: RUXOLITINIB
     Dosage: 15 MG, QD
     Route: 048
     Dates: start: 20180216
  2. JAKAVI [Suspect]
     Active Substance: RUXOLITINIB
     Dosage: 15 UNK
     Route: 048
     Dates: start: 20180323, end: 20190212
  3. JAKAVI [Suspect]
     Active Substance: RUXOLITINIB
     Indication: MYELOFIBROSIS
     Dosage: 30 OT, QD
     Route: 065
     Dates: start: 20180124, end: 20180215
  4. JAKAVI [Suspect]
     Active Substance: RUXOLITINIB
     Dosage: 5 OT
     Route: 048
     Dates: start: 20190510
  5. JAKAVI [Suspect]
     Active Substance: RUXOLITINIB
     Dosage: 20 OT
     Route: 048
     Dates: start: 20190213, end: 20190401
  6. JAKAVI [Suspect]
     Active Substance: RUXOLITINIB
     Dosage: 15 OT
     Route: 048
     Dates: start: 20190402, end: 20190509

REACTIONS (8)
  - Cerebral atrophy [Recovered/Resolved]
  - Constipation [Unknown]
  - Headache [Unknown]
  - Vomiting [Unknown]
  - Intracranial hypotension [Recovered/Resolved]
  - Subarachnoid haemorrhage [Recovering/Resolving]
  - Visual impairment [Recovered/Resolved]
  - Headache [Recovered/Resolved]

NARRATIVE: CASE EVENT DATE: 20180206
